FAERS Safety Report 8546349 (Version 4)
Quarter: 2013Q2

REPORT INFORMATION
  Report Type: Spontaneous
  Country: US (occurrence: US)
  Receive Date: 20120504
  Receipt Date: 20130422
  Transmission Date: 20140414
  Serious: Yes (Hospitalization, Other)
  Sender: FDA-Public Use
  Company Number: US-PFIZER INC-2012107187

PATIENT
  Age: 52 Year
  Sex: Female
  Weight: 68.03 kg

DRUGS (7)
  1. PRISTIQ [Suspect]
     Indication: BIPOLAR DISORDER
     Dosage: 50 MG, DAILY
     Dates: end: 20130409
  2. PRISTIQ [Suspect]
     Indication: DEPRESSION
  3. MELOXICAM [Concomitant]
     Dosage: 50 MG, DAILY
  4. TRAZODONE [Concomitant]
     Dosage: 50 MG, DAILY
  5. CYCLOBENZAPRINE [Concomitant]
     Dosage: 10 MG, DAILY
  6. ALPRAZOLAM [Concomitant]
     Dosage: 1 MG, 3X/DAY
  7. FLONASE [Concomitant]
     Indication: HYPERSENSITIVITY
     Dosage: UNK, DAILY

REACTIONS (9)
  - Road traffic accident [Unknown]
  - Back injury [Unknown]
  - Dysstasia [Unknown]
  - Depression [Unknown]
  - Influenza like illness [Unknown]
  - Visual impairment [Unknown]
  - Nervousness [Unknown]
  - Crying [Unknown]
  - Off label use [Unknown]
